FAERS Safety Report 13450231 (Version 1)
Quarter: 2017Q2

REPORT INFORMATION
  Report Type: Spontaneous
  Country: US (occurrence: US)
  Receive Date: 20170417
  Receipt Date: 20170417
  Transmission Date: 20170830
  Serious: Yes (Other)
  Sender: FDA-Public Use
  Company Number: US-GLAXOSMITHKLINE-US2017054097

PATIENT

DRUGS (2)
  1. THERAFLU EXPRESSMAX DAYTIME SEVERE COLD AND COUGH [Suspect]
     Active Substance: ACETAMINOPHEN\DEXTROMETHORPHAN HYDROBROMIDE\PHENYLEPHRINE HYDROCHLORIDE
     Indication: OROPHARYNGEAL PAIN
  2. THERAFLU EXPRESSMAX DAYTIME SEVERE COLD AND COUGH [Suspect]
     Active Substance: ACETAMINOPHEN\DEXTROMETHORPHAN HYDROBROMIDE\PHENYLEPHRINE HYDROCHLORIDE
     Indication: NASAL CONGESTION
     Dosage: UNK

REACTIONS (4)
  - Gastrointestinal disorder [Unknown]
  - Abdominal pain upper [Unknown]
  - Flatulence [Unknown]
  - Abdominal discomfort [Unknown]
